FAERS Safety Report 4786656-2 (Version None)
Quarter: 2005Q4

REPORT INFORMATION
  Report Type: 
  Country: None (occurrence: None)
  Receive Date: 20051003
  Receipt Date: 20051003
  Transmission Date: 20060501
  Serious: Yes (Other)
  Sender: FDA-Public Use
  Company Number: None

PATIENT
  Age: 78 Year
  Sex: Female
  Weight: 63.5036 kg

DRUGS (2)
  1. LIPITOR [Suspect]
     Indication: BLOOD CHOLESTEROL
     Dosage: 80MG
  2. CIPRO [Suspect]
     Dosage: 500MG

REACTIONS (2)
  - DRUG DISPENSING ERROR [None]
  - INTERCEPTED MEDICATION ERROR [None]
